FAERS Safety Report 8156479-5 (Version None)
Quarter: 2012Q1

REPORT INFORMATION
  Report Type: 
  Country: None (occurrence: None)
  Receive Date: 20120222
  Receipt Date: 20120216
  Transmission Date: 20120608
  Serious: Yes (Hospitalization)
  Sender: FDA-Public Use
  Company Number: FR-PFIZER INC-2012041511

PATIENT
  Age: 50 Year
  Sex: Male

DRUGS (3)
  1. FLUCONAZOLE [Suspect]
     Indication: CANDIDIASIS
     Dosage: UNK
     Route: 048
     Dates: start: 20111229, end: 20120111
  2. FUCIDINE CAP [Suspect]
     Indication: INFECTION
     Dosage: UNK
     Route: 048
     Dates: start: 20111229, end: 20120111
  3. LEVOFLOXACIN [Suspect]
     Indication: INFECTION
     Dosage: UNK
     Route: 048
     Dates: start: 20111229, end: 20120111

REACTIONS (3)
  - RASH MACULO-PAPULAR [None]
  - PYREXIA [None]
  - EOSINOPHILIA [None]
